FAERS Safety Report 9878880 (Version 2)
Quarter: 2014Q1

REPORT INFORMATION
  Report Type: Spontaneous
  Country: US (occurrence: US)
  Receive Date: 20140206
  Receipt Date: 20140206
  Transmission Date: 20141002
  Serious: No
  Sender: FDA-Public Use
  Company Number: US-ALLERGAN-1309665US

PATIENT
  Sex: Female

DRUGS (3)
  1. BOTOX COSMETIC [Suspect]
     Indication: SKIN WRINKLING
     Dosage: UNK, SINGLE
     Route: 030
     Dates: start: 20130607, end: 20130607
  2. BOTOX COSMETIC [Suspect]
     Dosage: UNK, SINGLE
     Route: 030
     Dates: start: 20130607, end: 20130607
  3. BOTOX COSMETIC [Suspect]
     Dosage: UNK, SINGLE
     Route: 030
     Dates: start: 20130607, end: 20130607

REACTIONS (2)
  - Wrong technique in drug usage process [Unknown]
  - Drug ineffective [Unknown]
